FAERS Safety Report 8999293 (Version 2)
Quarter: 2013Q1

REPORT INFORMATION
  Report Type: Spontaneous
  Country: US (occurrence: US)
  Receive Date: 20130103
  Receipt Date: 20130123
  Transmission Date: 20140127
  Serious: Yes (Death)
  Sender: FDA-Public Use
  Company Number: US-PFIZER INC-2012332422

PATIENT
  Age: 61 Year
  Sex: Male

DRUGS (3)
  1. INLYTA [Suspect]
     Dosage: 5MG, EVERY 12 HOURS
     Route: 048
     Dates: start: 20121031
  2. INLYTA [Suspect]
     Dosage: 2 MG, 2X/DAY (TWO 1 MG TABLETS)
     Dates: start: 20121031
  3. INLYTA [Suspect]
     Dosage: 5 MG, 2X/DAY
     Route: 048

REACTIONS (3)
  - Disease progression [Fatal]
  - Glioblastoma multiforme [Fatal]
  - Off label use [Unknown]
